FAERS Safety Report 13689948 (Version 2)
Quarter: 2017Q3

REPORT INFORMATION
  Report Type: Spontaneous
  Country: JP (occurrence: JP)
  Receive Date: 20170626
  Receipt Date: 20170713
  Transmission Date: 20171127
  Serious: No
  Sender: FDA-Public Use
  Company Number: JP-ELI_LILLY_AND_COMPANY-JP201706009314

PATIENT
  Age: 67 Year
  Sex: Female

DRUGS (3)
  1. NATEGLINIDE. [Concomitant]
     Active Substance: NATEGLINIDE
     Indication: PRODUCT USED FOR UNKNOWN INDICATION
     Dosage: 90 MG, DAILY
     Route: 065
  2. TRULICITY [Suspect]
     Active Substance: DULAGLUTIDE
     Indication: DIABETES MELLITUS
     Dosage: 0.75 MG, WEEKLY (1/W)
     Route: 058
     Dates: start: 201603
  3. AMLODIPINE [Concomitant]
     Active Substance: AMLODIPINE BESYLATE
     Indication: PRODUCT USED FOR UNKNOWN INDICATION
     Dosage: 5 MG, DAILY
     Route: 065

REACTIONS (2)
  - Blood glucose increased [Unknown]
  - Liver function test increased [Unknown]

NARRATIVE: CASE EVENT DATE: 201703
